FAERS Safety Report 4542547-3 (Version None)
Quarter: 2004Q4

REPORT INFORMATION
  Report Type: 
  Country: None (occurrence: None)
  Receive Date: 20041230
  Receipt Date: 20041223
  Transmission Date: 20050328
  Serious: Yes (Other)
  Sender: FDA-Public Use
  Company Number: GB-MERCK-0412GBR00198

PATIENT
  Age: 58 Year
  Sex: Female

DRUGS (5)
  1. ZOCOR [Suspect]
     Indication: PROPHYLAXIS
     Route: 048
     Dates: start: 20041102, end: 20041202
  2. MEBEVERINE HYDROCHLORIDE [Concomitant]
     Indication: IRRITABLE BOWEL SYNDROME
     Route: 048
     Dates: start: 20040219
  3. OMEPRAZOLE [Concomitant]
     Indication: HIATUS HERNIA
     Route: 048
     Dates: start: 20040715
  4. BENDROFLUMETHIAZIDE [Concomitant]
     Indication: HYPERTENSION
     Route: 048
     Dates: start: 20030408
  5. ESTROGENS, CONJUGATED [Concomitant]
     Indication: HORMONE REPLACEMENT THERAPY
     Route: 048
     Dates: start: 20020605

REACTIONS (5)
  - ANGIONEUROTIC OEDEMA [None]
  - FLUID RETENTION [None]
  - HEADACHE [None]
  - MALAISE [None]
  - PARAESTHESIA [None]
